FAERS Safety Report 6263327-7 (Version None)
Quarter: 2009Q3

REPORT INFORMATION
  Report Type: 
  Country: None (occurrence: None)
  Receive Date: 20090710
  Receipt Date: 20090702
  Transmission Date: 20100115
  Serious: Yes (Hospitalization, Other)
  Sender: FDA-Public Use
  Company Number: FR-WYE-G03972909

PATIENT
  Sex: Female

DRUGS (8)
  1. EFFEXOR [Suspect]
     Route: 048
  2. LEVOTHYROX [Concomitant]
     Dosage: UNKNOWN
  3. CARDENSIEL [Concomitant]
     Dosage: UNKNOWN
  4. OFLOCET [Concomitant]
     Dosage: UNKNOWN
  5. SPECIAFOLDINE [Concomitant]
     Dosage: UNKNOWN
  6. ALPRAZOLAM [Concomitant]
     Dosage: UNKNOWN
  7. PREVISCAN [Suspect]
     Route: 048
     Dates: end: 20090519
  8. TARDYFERON [Concomitant]
     Dosage: UNKNOWN

REACTIONS (6)
  - ANAEMIA [None]
  - FAECES DISCOLOURED [None]
  - GASTRIC ULCER HAEMORRHAGE [None]
  - INTERNATIONAL NORMALISED RATIO INCREASED [None]
  - OVERDOSE [None]
  - RENAL FAILURE [None]
